FAERS Safety Report 8909890 (Version 1)
Quarter: 2012Q4

REPORT INFORMATION
  Report Type: 
  Country: US (occurrence: US)
  Receive Date: 20121115
  Receipt Date: 20121115
  Transmission Date: 20130627
  Serious: Yes (Other)
  Sender: FDA-Public Use
  Company Number: US-PFIZER INC-2012281544

PATIENT
  Age: 63 Year
  Sex: Male
  Weight: 68.03 kg

DRUGS (2)
  1. VIAGRA [Suspect]
     Indication: ERECTILE DYSFUNCTION
     Dosage: 50 mg, as needed
     Route: 048
     Dates: start: 2012, end: 201210
  2. OMEPRAZOLE [Concomitant]
     Indication: ANTACID THERAPY
     Dosage: 20 mg, 1x/day

REACTIONS (2)
  - Penile infection [Not Recovered/Not Resolved]
  - Genital rash [Not Recovered/Not Resolved]
